FAERS Safety Report 6494278-0 (Version None)
Quarter: 2009Q4

REPORT INFORMATION
  Report Type: 
  Country: None (occurrence: None)
  Receive Date: 20091214
  Receipt Date: 20090202
  Transmission Date: 20100525
  Serious: Yes (Other)
  Sender: FDA-Public Use
  Company Number: US-BRISTOL-MYERS SQUIBB COMPANY-14490866

PATIENT
  Age: 43 Year
  Sex: Female
  Weight: 59 kg

DRUGS (5)
  1. ABILIFY [Suspect]
     Indication: MAJOR DEPRESSION
     Dosage: TOOK MEDICATION FOR 8 OR 9 MONTHS.
     Dates: end: 20061201
  2. VIVELLE [Concomitant]
     Dosage: PATCH
     Route: 062
  3. WELLBUTRIN [Concomitant]
  4. CELEXA [Concomitant]
  5. METFORMIN HCL [Concomitant]

REACTIONS (1)
  - DIABETES MELLITUS [None]
